FAERS Safety Report 8163138-1 (Version None)
Quarter: 2012Q1

REPORT INFORMATION
  Report Type: 
  Country: None (occurrence: None)
  Receive Date: 20120224
  Receipt Date: 20110331
  Transmission Date: 20120608
  Serious: No
  Sender: FDA-Public Use
  Company Number: US-PFIZER INC-K201100374

PATIENT
  Age: 62 Year
  Sex: Female
  Weight: 79.365 kg

DRUGS (4)
  1. ZOLOFT [Concomitant]
     Indication: NERVOUS SYSTEM DISORDER
     Dosage: UNK
  2. FLECTOR [Suspect]
     Indication: ARTHRITIS
     Dosage: 1 PATCH, EVERY 12 H
     Route: 061
     Dates: start: 20110301
  3. MICARDIS [Concomitant]
     Indication: HYPERTENSION
     Dosage: UNK
  4. FOSTEUM [Concomitant]
     Indication: OSTEOPOROSIS
     Dosage: UNK

REACTIONS (1)
  - OROPHARYNGEAL PAIN [None]
